FAERS Safety Report 25024693 (Version 1)
Quarter: 2025Q1

REPORT INFORMATION
  Report Type: Spontaneous
  Country: US (occurrence: None)
  Receive Date: 20250228
  Receipt Date: 20250228
  Transmission Date: 20250408
  Serious: Yes (Life-Threatening, Hospitalization, Other)
  Sender: FDA-CTU
  Company Number: None

PATIENT
  Age: 43 Year
  Sex: Female
  Weight: 76.5 kg

DRUGS (10)
  1. WEGOVY [Suspect]
     Active Substance: SEMAGLUTIDE
     Indication: Weight decreased
     Dates: start: 20240207, end: 20250129
  2. LEXAPRO [Concomitant]
     Active Substance: ESCITALOPRAM OXALATE
  3. XANAX [Concomitant]
     Active Substance: ALPRAZOLAM
  4. NEXIUM [Concomitant]
     Active Substance: ESOMEPRAZOLE MAGNESIUM
  5. DABIGATRAN [Concomitant]
     Active Substance: DABIGATRAN
  6. ATORVASTATIN [Concomitant]
     Active Substance: ATORVASTATIN
  7. BISOPROLOL [Concomitant]
     Active Substance: BISOPROLOL
  8. ASPIRIN [Concomitant]
     Active Substance: ASPIRIN
  9. Vitamin D 3000 [Concomitant]
  10. VITAMINS [Concomitant]
     Active Substance: VITAMINS

REACTIONS (4)
  - Anxiety [None]
  - Chest discomfort [None]
  - Palpitations [None]
  - Atrial fibrillation [None]

NARRATIVE: CASE EVENT DATE: 20241029
